FAERS Safety Report 8588875-6 (Version None)
Quarter: 2012Q3

REPORT INFORMATION
  Report Type: 
  Country: None (occurrence: None)
  Receive Date: 20120813
  Receipt Date: 20120809
  Transmission Date: 20120928
  Serious: Yes (Other)
  Sender: FDA-Public Use
  Company Number: US-PFIZER INC-2012194795

PATIENT
  Age: 58 Year
  Sex: Female

DRUGS (2)
  1. PRISTIQ [Suspect]
     Indication: BIPOLAR DISORDER
     Dosage: 50 MG, 1X/DAY
     Route: 048
  2. ALPRAZOLAM [Suspect]
     Indication: BIPOLAR DISORDER
     Dosage: UNK

REACTIONS (3)
  - ANXIETY [None]
  - IRRITABILITY [None]
  - MOOD SWINGS [None]
